FAERS Safety Report 6674806-2 (Version None)
Quarter: 2010Q2

REPORT INFORMATION
  Report Type: 
  Country: None (occurrence: None)
  Receive Date: 20100409
  Receipt Date: 20100401
  Transmission Date: 20101027
  Serious: Yes (Other)
  Sender: FDA-Public Use
  Company Number: US-PFIZER INC-2010022445

PATIENT
  Sex: Female
  Weight: 104 kg

DRUGS (2)
  1. DEPO-PROVERA [Suspect]
     Indication: CONTRACEPTION
     Dosage: UNK
     Dates: start: 20100125
  2. PHENTERMINE [Concomitant]
     Indication: WEIGHT INCREASED
     Dosage: UNK

REACTIONS (5)
  - ABORTION SPONTANEOUS [None]
  - DRUG INEFFECTIVE [None]
  - NECK PAIN [None]
  - SINUSITIS [None]
  - UNINTENDED PREGNANCY [None]
